FAERS Safety Report 15372285 (Version 1)
Quarter: 2018Q3

REPORT INFORMATION
  Report Type: Spontaneous
  Country: CN (occurrence: CN)
  Receive Date: 20180911
  Receipt Date: 20180911
  Transmission Date: 20181010
  Serious: Yes (Hospitalization, Other)
  Sender: FDA-Public Use
  Company Number: CN-009507513-1809CHN001445

PATIENT
  Age: 45 Year
  Sex: Male

DRUGS (3)
  1. LOSARTAN POTASSIUM. [Concomitant]
     Active Substance: LOSARTAN POTASSIUM
     Indication: HYPERTENSION
     Dosage: 50 MG, QD
     Route: 048
  2. KEYTRUDA [Suspect]
     Active Substance: PEMBROLIZUMAB
     Indication: NASOPHARYNGEAL CANCER
     Dosage: 100 MG, UNK
     Route: 041
     Dates: start: 20180802, end: 20180806
  3. KEYTRUDA [Suspect]
     Active Substance: PEMBROLIZUMAB
     Indication: METASTASES TO LYMPH NODES

REACTIONS (12)
  - Arthralgia [Unknown]
  - Temperature intolerance [Recovered/Resolved]
  - Myalgia [Unknown]
  - Pain [Unknown]
  - Autoimmune lung disease [Recovered/Resolved]
  - Erythema [Recovering/Resolving]
  - Pyrexia [Recovered/Resolved]
  - Diverticulum intestinal [Unknown]
  - Autoimmune myocarditis [Recovered/Resolved]
  - Interstitial lung disease [Recovered/Resolved]
  - Drug hypersensitivity [Recovering/Resolving]
  - Pulmonary mass [Recovering/Resolving]

NARRATIVE: CASE EVENT DATE: 2018
